FAERS Safety Report 4599201-1 (Version None)
Quarter: 2005Q2

REPORT INFORMATION
  Report Type: 
  Country: None (occurrence: None)
  Receive Date: 20050207
  Receipt Date: 20041122
  Transmission Date: 20051028
  Serious: Yes (Other)
  Sender: FDA-Public Use
  Company Number: PROG00204004122

PATIENT
  Age: 41 Year
  Sex: Female
  Weight: 68 kg

DRUGS (1)
  1. PROMETRIUM [Suspect]
     Indication: MENORRHAGIA
     Dosage: 200 MILLIGRAM(S) QD; ORAL
     Route: 048
     Dates: start: 20041120, end: 20041120

REACTIONS (4)
  - HYPERSENSITIVITY [None]
  - LOSS OF CONSCIOUSNESS [None]
  - NERVOUSNESS [None]
  - URTICARIA [None]
